FAERS Safety Report 5149756-3 (Version None)
Quarter: 2006Q4

REPORT INFORMATION
  Report Type: 
  Country: None (occurrence: None)
  Receive Date: 20061113
  Receipt Date: 20061106
  Transmission Date: 20070319
  Serious: Yes (Other)
  Sender: FDA-Public Use
  Company Number: BW-BRISTOL-MYERS SQUIBB COMPANY-13566914

PATIENT
  Sex: Female

DRUGS (3)
  1. STAVUDINE [Suspect]
  2. LAMIVUDINE [Suspect]
  3. NEVIRAPINE [Suspect]

REACTIONS (1)
  - BLOOD CHOLESTEROL INCREASED [None]
